FAERS Safety Report 10147233 (Version 1)
Quarter: 2014Q2

REPORT INFORMATION
  Report Type: Spontaneous
  Country: US (occurrence: US)
  Receive Date: 20140501
  Receipt Date: 20140501
  Transmission Date: 20141212
  Serious: No
  Sender: FDA-Public Use
  Company Number: US-PFIZER INC-2014116621

PATIENT
  Age: 66 Year
  Sex: Female
  Weight: 97.96 kg

DRUGS (2)
  1. REVATIO [Suspect]
     Indication: PULMONARY HYPERTENSION
     Dosage: 1 DF, 3X/DAY
     Route: 048
  2. REVATIO [Suspect]
     Dosage: 1 DF, 1X/DAY
     Route: 048
     Dates: end: 20140424

REACTIONS (1)
  - Malaise [Unknown]
